FAERS Safety Report 8038755-X (Version None)
Quarter: 2012Q1

REPORT INFORMATION
  Report Type: 
  Country: None (occurrence: None)
  Receive Date: 20120111
  Receipt Date: 20111205
  Transmission Date: 20120608
  Serious: No
  Sender: FDA-Public Use
  Company Number: US-AMGEN-USASP2011064559

PATIENT
  Age: 53 Year
  Sex: Male

DRUGS (1)
  1. ENBREL [Suspect]
     Indication: RHEUMATOID ARTHRITIS
     Dosage: 50 MG, QWK
     Dates: start: 20110501

REACTIONS (14)
  - JOINT SWELLING [None]
  - FATIGUE [None]
  - DRY SKIN [None]
  - INJECTION SITE HAEMORRHAGE [None]
  - MYALGIA [None]
  - DYSURIA [None]
  - WHITE BLOOD CELL COUNT DECREASED [None]
  - THYROID DISORDER [None]
  - INJECTION SITE HAEMATOMA [None]
  - SKIN HYPERTROPHY [None]
  - ACNE [None]
  - TREMOR [None]
  - CYSTITIS [None]
  - INJECTION SITE REACTION [None]
